FAERS Safety Report 6943474-4 (Version None)
Quarter: 2010Q3

REPORT INFORMATION
  Report Type: 
  Country: None (occurrence: None)
  Receive Date: 20100826
  Receipt Date: 20100812
  Transmission Date: 20110219
  Serious: Yes (Other)
  Sender: FDA-Public Use
  Company Number: DE-PFIZER INC-2010078272

PATIENT
  Age: 66 Year
  Sex: Male
  Weight: 100 kg

DRUGS (5)
  1. LYRICA [Suspect]
     Indication: NEURALGIA
     Dosage: 75 MG, 2X/DAY
     Route: 048
     Dates: end: 20100101
  2. LYRICA [Suspect]
     Dosage: 150 MG, 3X/DAY
     Dates: start: 20100501
  3. CONCOR [Concomitant]
     Dosage: 10 MG/DAILY
     Route: 048
  4. RAMIPRIL [Concomitant]
     Dosage: 5 MG, 2X/DAY
     Route: 048
  5. MIRTAZAPINE [Concomitant]
     Dosage: 15 MG/DAILY
     Route: 048

REACTIONS (7)
  - DIPLOPIA [None]
  - DRY MOUTH [None]
  - DYSURIA [None]
  - EYE SWELLING [None]
  - JOINT SWELLING [None]
  - PARAESTHESIA [None]
  - VISION BLURRED [None]
